FAERS Safety Report 12349427 (Version 1)
Quarter: 2016Q2

REPORT INFORMATION
  Report Type: Report from Study
  Country: BR (occurrence: BR)
  Receive Date: 20160510
  Receipt Date: 20160510
  Transmission Date: 20160815
  Serious: Yes (Other)
  Sender: FDA-Public Use
  Company Number: BR-ROCHE-1421444

PATIENT
  Sex: Female
  Weight: 72 kg

DRUGS (7)
  1. CERAZETTE (BRAZIL) [Concomitant]
     Indication: CONTRACEPTION
  2. PRELONE [Suspect]
     Active Substance: PREDNISOLONE
     Route: 065
  3. PANTOPRAZOLE [Concomitant]
     Active Substance: PANTOPRAZOLE SODIUM
     Dosage: ONE TABLET IN FASTING
     Route: 065
  4. ACTEMRA [Suspect]
     Active Substance: TOCILIZUMAB
     Indication: RHEUMATOID ARTHRITIS
     Dosage: MOST RECENT INFUSION: 31/MAR/2016.
     Route: 042
     Dates: start: 20131023, end: 20140328
  5. RITUXIMAB [Suspect]
     Active Substance: RITUXIMAB
     Indication: RHEUMATOID ARTHRITIS
     Route: 065
  6. INFLIXIMAB [Suspect]
     Active Substance: INFLIXIMAB
     Indication: RHEUMATOID ARTHRITIS
     Route: 065
  7. PRELONE [Suspect]
     Active Substance: PREDNISOLONE
     Indication: RHEUMATOID ARTHRITIS
     Route: 065

REACTIONS (4)
  - Breast disorder [Unknown]
  - Laceration [Not Recovered/Not Resolved]
  - Urinary tract infection [Unknown]
  - Maternal exposure during pregnancy [Unknown]
